FAERS Safety Report 5381212-X (Version None)
Quarter: 2007Q3

REPORT INFORMATION
  Report Type: 
  Country: None (occurrence: None)
  Receive Date: 20070706
  Receipt Date: 20070625
  Transmission Date: 20080115
  Serious: Yes (Hospitalization)
  Sender: FDA-Public Use
  Company Number: FR-PFIZER INC-2007053333

PATIENT
  Age: 80 Year
  Sex: Female

DRUGS (5)
  1. ATORVASTATIN CALCIUM [Suspect]
     Dosage: TEXT:1DF
     Route: 048
  2. FLUINDIONE [Interacting]
     Indication: PHLEBITIS
     Dosage: TEXT:0.75DF
     Route: 048
     Dates: start: 20070410, end: 20070428
  3. FLUINDIONE [Interacting]
     Indication: THROMBOPHLEBITIS
  4. OMEPRAZOLE [Concomitant]
     Indication: HIATUS HERNIA
  5. ACETAMINOPHEN W/ PROPOXYPHENE HCL [Concomitant]
     Indication: ARTHRALGIA

REACTIONS (4)
  - ANAEMIA [None]
  - DRUG INTERACTION [None]
  - HAEMATOMA [None]
  - PROTHROMBIN LEVEL INCREASED [None]
